FAERS Safety Report 16866215 (Version 1)
Quarter: 2019Q3

REPORT INFORMATION
  Report Type: Spontaneous
  Country: US (occurrence: US)
  Receive Date: 20190930
  Receipt Date: 20190930
  Transmission Date: 20191005
  Serious: No
  Sender: FDA-Public Use
  Company Number: US-ALLERGAN-1907701US

PATIENT
  Age: 44 Year
  Sex: Female

DRUGS (8)
  1. TOPAMAX [Concomitant]
     Active Substance: TOPIRAMATE
     Dosage: 125 MG, QHS
     Route: 065
  2. ZYRTEC [Concomitant]
     Active Substance: CETIRIZINE HYDROCHLORIDE
     Dosage: UNK
     Route: 065
  3. METFORMIN [Concomitant]
     Active Substance: METFORMIN HYDROCHLORIDE
     Dosage: UNK
     Route: 065
  4. LAMICTAL [Concomitant]
     Active Substance: LAMOTRIGINE
     Dosage: UNK
     Route: 065
  5. VRAYLAR [Suspect]
     Active Substance: CARIPRAZINE
     Indication: BIPOLAR I DISORDER
     Dosage: 4.5 MG, QD
     Route: 065
  6. VRAYLAR [Suspect]
     Active Substance: CARIPRAZINE
     Indication: POST-TRAUMATIC STRESS DISORDER
  7. TOPAMAX [Concomitant]
     Active Substance: TOPIRAMATE
     Dosage: 100 MG, QAM
     Route: 065
  8. PRAZOSIN. [Concomitant]
     Active Substance: PRAZOSIN
     Dosage: 2 MG, QHS
     Route: 065

REACTIONS (2)
  - Blood pressure increased [Recovered/Resolved]
  - Off label use [Unknown]
